FAERS Safety Report 21606012 (Version 1)
Quarter: 2022Q4

REPORT INFORMATION
  Report Type: Spontaneous
  Country: SE (occurrence: SE)
  Receive Date: 20221117
  Receipt Date: 20221117
  Transmission Date: 20230113
  Serious: Yes (Hospitalization)
  Sender: FDA-Public Use
  Company Number: None

PATIENT
  Age: 64 Year
  Sex: Male
  Weight: 73 kg

DRUGS (9)
  1. RYBELSUS [Suspect]
     Active Substance: SEMAGLUTIDE
     Indication: Product used for unknown indication
     Dosage: UNK
     Route: 048
     Dates: end: 20220810
  2. RYBELSUS [Suspect]
     Active Substance: SEMAGLUTIDE
     Dosage: UNK
     Route: 048
     Dates: start: 20220811, end: 20220819
  3. SILDENAFIL 1A FARMA [Concomitant]
     Indication: Product used for unknown indication
     Dosage: 50 MG 1VB
     Route: 048
     Dates: start: 20190919
  4. METFORMIN ACCORD [Concomitant]
     Indication: Product used for unknown indication
     Dosage: 500 MG 2X2
     Route: 048
     Dates: start: 20190424
  5. JARDIANCE [Concomitant]
     Active Substance: EMPAGLIFLOZIN
     Indication: Product used for unknown indication
     Dosage: 25 MG 0,5X1
     Route: 048
     Dates: start: 20211209
  6. CLOPIDOGREL [Concomitant]
     Active Substance: CLOPIDOGREL BISULFATE
     Indication: Product used for unknown indication
     Dosage: 75 MG 1X1
     Route: 048
     Dates: start: 20190919
  7. ATORVASTATIN [Concomitant]
     Active Substance: ATORVASTATIN
     Indication: Product used for unknown indication
     Dosage: 40 MG 1X1
     Route: 048
     Dates: start: 20190419
  8. ALFUZOSIN RATIOPHARM [Concomitant]
     Indication: Product used for unknown indication
     Dosage: 10 MG 1X1
     Route: 048
     Dates: start: 20201208
  9. LOSARSTAD [Concomitant]
     Indication: Product used for unknown indication
     Dosage: 50 MG 1X1
     Route: 048
     Dates: start: 20201217

REACTIONS (1)
  - Atrial flutter [Recovered/Resolved]

NARRATIVE: CASE EVENT DATE: 20220813
